FAERS Safety Report 24980875 (Version 2)
Quarter: 2025Q1

REPORT INFORMATION
  Report Type: Spontaneous
  Country: US (occurrence: US)
  Receive Date: 20250218
  Receipt Date: 20250219
  Transmission Date: 20250409
  Serious: Yes (Hospitalization, Disabling)
  Sender: PFIZER
  Company Number: US-MLMSERVICE-20250205-PI387915-00132-1

PATIENT
  Age: 37 Year
  Sex: Male

DRUGS (2)
  1. NOREPINEPHRINE BITARTRATE [Suspect]
     Active Substance: NOREPINEPHRINE BITARTRATE
     Indication: Hypotension
     Dates: start: 2021
  2. VASOPRESSIN [Suspect]
     Active Substance: VASOPRESSIN
     Indication: Hypotension
     Dates: start: 2021

REACTIONS (2)
  - Gangrene [Recovered/Resolved]
  - Vascular occlusion [Unknown]

NARRATIVE: CASE EVENT DATE: 20210101
